FAERS Safety Report 4476717-X (Version None)
Quarter: 2004Q4

REPORT INFORMATION
  Report Type: 
  Country: None (occurrence: None)
  Receive Date: 20041015
  Receipt Date: 20041015
  Transmission Date: 20050328
  Serious: Yes (Death)
  Sender: FDA-Public Use
  Company Number: None

PATIENT
  Sex: Female
  Weight: 46 kg

DRUGS (7)
  1. CAPECITABINE [Suspect]
     Indication: ADENOCARCINOMA OF THE CERVIX
     Dosage: 1800 MG/M2  BID X 14 DAYS   ORAL
     Route: 048
     Dates: start: 20040614, end: 20040627
  2. MS CONTIN [Concomitant]
  3. PERCOCET [Concomitant]
  4. ARANESP [Concomitant]
  5. MOTRIN [Concomitant]
  6. LOVENOX [Concomitant]
  7. BENADRYL [Concomitant]

REACTIONS (14)
  - BLOOD MAGNESIUM DECREASED [None]
  - BLOOD PRESSURE DECREASED [None]
  - BODY TEMPERATURE DECREASED [None]
  - DISCOMFORT [None]
  - DIZZINESS [None]
  - DYSPNOEA [None]
  - FEELING COLD [None]
  - HAEMORRHAGE [None]
  - HEART RATE INCREASED [None]
  - HYPOKALAEMIA [None]
  - OEDEMA PERIPHERAL [None]
  - PALLOR [None]
  - PLEURAL EFFUSION [None]
  - VASCULAR ACCESS COMPLICATION [None]
